FAERS Safety Report 5678682-6 (Version None)
Quarter: 2008Q1

REPORT INFORMATION
  Report Type: 
  Country: None (occurrence: None)
  Receive Date: 20080320
  Receipt Date: 20080310
  Transmission Date: 20080703
  Serious: Yes (Other)
  Sender: FDA-Public Use
  Company Number: 2008AL001500

PATIENT
  Age: 60 Year
  Sex: Male

DRUGS (1)
  1. ACETAMINOPHEN AND CODEINE PHOSPHATE [Suspect]
     Indication: PAIN
     Dosage: 6 GM; QD; PO
     Route: 048

REACTIONS (8)
  - ASCITES [None]
  - HEPATIC CIRRHOSIS [None]
  - HEPATOTOXICITY [None]
  - INCORRECT DOSE ADMINISTERED [None]
  - PORTAL HYPERTENSION [None]
  - PROTHROMBIN TIME PROLONGED [None]
  - SELF-MEDICATION [None]
  - THROMBOCYTOPENIA [None]
